FAERS Safety Report 5971385-X (Version None)
Quarter: 2008Q4

REPORT INFORMATION
  Report Type: 
  Country: None (occurrence: None)
  Receive Date: 20081130
  Receipt Date: 20081125
  Transmission Date: 20090506
  Serious: Yes (Other)
  Sender: FDA-Public Use
  Company Number: DE-PFIZER INC-2008100200

PATIENT
  Age: 82 Year
  Sex: Female

DRUGS (2)
  1. XALATAN [Suspect]
     Indication: GLAUCOMA
     Route: 047
  2. OXAZEPAM [Concomitant]
     Route: 048

REACTIONS (1)
  - HYPERTENSIVE CRISIS [None]
